FAERS Safety Report 6683481-2 (Version None)
Quarter: 2010Q2

REPORT INFORMATION
  Report Type: 
  Country: None (occurrence: None)
  Receive Date: 20100415
  Receipt Date: 20100405
  Transmission Date: 20101027
  Serious: Yes (Hospitalization)
  Sender: FDA-Public Use
  Company Number: US-BAXTER-2010BH006609

PATIENT
  Age: 62 Year
  Sex: Male

DRUGS (2)
  1. DIANEAL [Suspect]
     Indication: RENAL FAILURE CHRONIC
     Route: 033
     Dates: start: 20100101, end: 20100115
  2. DIANEAL [Suspect]
     Route: 033
     Dates: end: 20091104

REACTIONS (4)
  - HERNIA [None]
  - MALAISE [None]
  - POSTOPERATIVE WOUND INFECTION [None]
  - PROCEDURAL COMPLICATION [None]
